FAERS Safety Report 4269433-0 (Version None)
Quarter: 2004Q1

REPORT INFORMATION
  Report Type: 
  Country: None (occurrence: None)
  Receive Date: 20040112
  Receipt Date: 20031215
  Transmission Date: 20041129
  Serious: Yes (Hospitalization)
  Sender: FDA-Public Use
  Company Number: RB-349-2003

PATIENT
  Age: 37 Year
  Sex: Male

DRUGS (1)
  1. BUPRENORPHINE HYDROCHLORIDE [Suspect]
     Indication: DRUG WITHDRAWAL SYNDROME
     Route: 042
     Dates: end: 20031001

REACTIONS (4)
  - EMBOLISM [None]
  - INJECTION SITE ABSCESS [None]
  - INTENTIONAL MISUSE [None]
  - RETINAL HAEMORRHAGE [None]
